FAERS Safety Report 7414869-X (Version None)
Quarter: 2011Q2

REPORT INFORMATION
  Report Type: 
  Country: None (occurrence: None)
  Receive Date: 20110414
  Receipt Date: 20110411
  Transmission Date: 20111010
  Serious: Yes (Hospitalization)
  Sender: FDA-Public Use
  Company Number: BE-TEVA-276129ISR

PATIENT
  Sex: Male
  Weight: 57 kg

DRUGS (5)
  1. LENALIDOMIDE [Suspect]
     Route: 048
     Dates: start: 20110311
  2. ANTITHROMBOTIC AGENTS [Concomitant]
     Indication: THROMBOSIS PROPHYLAXIS
  3. DEXAMETHASONE [Suspect]
     Dates: start: 20110311
  4. DEXAMETHASONE [Suspect]
     Indication: MULTIPLE MYELOMA
     Dates: start: 20100625
  5. LENALIDOMIDE [Suspect]
     Indication: MULTIPLE MYELOMA
     Route: 048
     Dates: start: 20100625

REACTIONS (1)
  - PNEUMONIA [None]
